FAERS Safety Report 8143805-6 (Version None)
Quarter: 2012Q1

REPORT INFORMATION
  Report Type: 
  Country: None (occurrence: None)
  Receive Date: 20120217
  Receipt Date: 20120206
  Transmission Date: 20120608
  Serious: Yes (Other)
  Sender: FDA-Public Use
  Company Number: US-JNJFOC-20120204602

PATIENT
  Sex: Male
  Weight: 111.13 kg

DRUGS (7)
  1. REMICADE [Suspect]
     Indication: PSORIATIC ARTHROPATHY
     Route: 042
     Dates: start: 20110830, end: 20111013
  2. FOLIC ACID [Concomitant]
     Indication: ARTHRITIS
     Route: 065
     Dates: start: 20100101
  3. TRAMADOL HCL [Concomitant]
     Indication: PAIN
     Route: 065
     Dates: start: 20070101
  4. LOSARTAN POTASSIUM [Concomitant]
     Indication: BLOOD PRESSURE
     Route: 065
     Dates: start: 20040101
  5. METHOTREXATE [Concomitant]
     Indication: ARTHRITIS
     Route: 065
     Dates: start: 20100101
  6. WARFARIN [Concomitant]
     Indication: COAGULOPATHY
     Route: 065
     Dates: start: 20020101
  7. LEXAPRO [Concomitant]
     Indication: ANXIETY
     Route: 065
     Dates: start: 20020101

REACTIONS (4)
  - ERYTHEMA [None]
  - INFECTION [None]
  - BLOOD TESTOSTERONE DECREASED [None]
  - THROMBOSIS [None]
